FAERS Safety Report 7264652-3 (Version None)
Quarter: 2011Q1

REPORT INFORMATION
  Report Type: 
  Country: None (occurrence: None)
  Receive Date: 20110119
  Receipt Date: 20110111
  Transmission Date: 20110831
  Serious: Yes (Death)
  Sender: FDA-Public Use
  Company Number: 024881

PATIENT
  Age: 64 Year
  Sex: Female
  Weight: 134.1 kg

DRUGS (11)
  1. NEXIUM [Concomitant]
  2. LORTAB [Suspect]
     Indication: OSTEOARTHRITIS
     Dosage: 10/500 MG, ORAL
     Route: 048
     Dates: start: 20100210, end: 20101108
  3. INVESTIGATIONAL DRUG (INVESTIGATIONAL DRUG) [Suspect]
     Indication: OSTEOARTHRITIS
     Dosage: HIGH DOSE, ORAL
     Route: 048
     Dates: start: 20100811, end: 20101108
  4. INVESTIGATIONAL DRUG (INVESTIGATIONAL DRUG) [Suspect]
     Indication: RHEUMATOID ARTHRITIS
     Dosage: HIGH DOSE, ORAL
     Route: 048
     Dates: start: 20100811, end: 20101108
  5. LISINOPRIL [Concomitant]
  6. K-DUR [Concomitant]
  7. ADVAIR [Concomitant]
  8. RESTORIL [Concomitant]
  9. VENTOLIN HFA [Concomitant]
  10. LASIX [Concomitant]
  11. TEMAZEPAM [Concomitant]

REACTIONS (2)
  - RESPIRATORY FAILURE [None]
  - UNRESPONSIVE TO STIMULI [None]
